FAERS Safety Report 8549240-0 (Version None)
Quarter: 2012Q3

REPORT INFORMATION
  Report Type: 
  Country: None (occurrence: None)
  Receive Date: 20120730
  Receipt Date: 20120725
  Transmission Date: 20120928
  Serious: Yes (Hospitalization)
  Sender: FDA-Public Use
  Company Number: PHEH2012US014645

PATIENT
  Sex: Male

DRUGS (8)
  1. NIFEDIPINE [Concomitant]
  2. ALPRAZOLAM [Concomitant]
     Dosage: 0.5 MG, UNK
  3. VALTURNA [Suspect]
     Dosage: 300/320 ONCE DAILY
     Dates: start: 20100701
  4. CARVEDILOL [Concomitant]
  5. CLOPIDOGREL [Concomitant]
     Dosage: 75 MG, UNK
  6. ASPIRIN [Concomitant]
     Dosage: UNK
  7. VITAMIN TAB [Concomitant]
     Dosage: UNK
  8. CRESTOR [Concomitant]
     Dosage: 10 MG, UNK

REACTIONS (1)
  - CEREBROVASCULAR ACCIDENT [None]
